FAERS Safety Report 5067246-3 (Version None)
Quarter: 2006Q3

REPORT INFORMATION
  Report Type: 
  Country: None (occurrence: None)
  Receive Date: 20060727
  Receipt Date: 20060718
  Transmission Date: 20061208
  Serious: Yes (Other)
  Sender: FDA-Public Use
  Company Number: 2006-DE-03712GD

PATIENT
  Sex: Female

DRUGS (2)
  1. PREDNISONE TAB [Suspect]
     Indication: NEPHROTIC SYNDROME
     Dosage: 40 MG/D FOR 10 DAYS FOLLOWED BY 25 MG ON ALTERNATE DAYS AND THEN TAPERED
  2. METHYLPREDNISOLONE [Suspect]
     Indication: NEPHROTIC SYNDROME
     Dosage: 500 MG, IV
     Route: 042

REACTIONS (12)
  - ARTHRALGIA [None]
  - BONE LESION [None]
  - CUSHINGOID [None]
  - DRUG DEPENDENCE [None]
  - DRUG INEFFECTIVE [None]
  - GAIT DISTURBANCE [None]
  - HYPERTRICHOSIS [None]
  - JOINT SWELLING [None]
  - NEPHROPATHY [None]
  - OSTEONECROSIS [None]
  - RESORPTION BONE INCREASED [None]
  - SCAR [None]
